FAERS Safety Report 7797419-8 (Version None)
Quarter: 2011Q4

REPORT INFORMATION
  Report Type: 
  Country: None (occurrence: None)
  Receive Date: 20111003
  Receipt Date: 20110923
  Transmission Date: 20120403
  Serious: Yes (Life-Threatening, Hospitalization)
  Sender: FDA-Public Use
  Company Number: 2011P1009058

PATIENT
  Age: 8 Year
  Sex: Male

DRUGS (1)
  1. ALBENDAZOLE (NO PREF. NAME) [Suspect]
     Indication: ABDOMINAL PAIN
     Dosage: 2 TABLETS; X1
     Dates: start: 20110914

REACTIONS (2)
  - PRURITUS GENERALISED [None]
  - ERYTHEMA [None]
